FAERS Safety Report 19539129 (Version 1)
Quarter: 2021Q3

REPORT INFORMATION
  Report Type: Spontaneous
  Country: US (occurrence: US)
  Receive Date: 20210714
  Receipt Date: 20210714
  Transmission Date: 20211014
  Serious: Yes (Other)
  Sender: FDA-Public Use
  Company Number: US-AMGEN-USASP2021105933

PATIENT
  Age: 58 Year
  Sex: Female

DRUGS (3)
  1. SULFASALAZINE DELAYED?RELEASE [Concomitant]
     Active Substance: SULFASALAZINE
     Dosage: UNK
  2. OTEZLA [Suspect]
     Active Substance: APREMILAST
     Indication: PSORIATIC ARTHROPATHY
     Dosage: 30 MILLIGRAM, BID
     Route: 048
     Dates: start: 20210331
  3. DICLOFENAC [Concomitant]
     Active Substance: DICLOFENAC
     Dosage: UNK

REACTIONS (1)
  - Psoriatic arthropathy [Not Recovered/Not Resolved]

NARRATIVE: CASE EVENT DATE: 2021
